FAERS Safety Report 14709393 (Version 2)
Quarter: 2018Q2

REPORT INFORMATION
  Report Type: Report from Study
  Country: PL (occurrence: PL)
  Receive Date: 20180403
  Receipt Date: 20180622
  Transmission Date: 20180711
  Serious: Yes (Death, Hospitalization)
  Sender: FDA-Public Use
  Company Number: PL-JNJFOC-20180336593

PATIENT
  Age: 50 Year
  Sex: Female

DRUGS (1)
  1. IBRUTINIB [Suspect]
     Active Substance: IBRUTINIB
     Indication: CHRONIC LYMPHOCYTIC LEUKAEMIA
     Route: 048
     Dates: start: 201408

REACTIONS (11)
  - Respiratory acidosis [Fatal]
  - Blood pressure decreased [Unknown]
  - Hepatic function abnormal [Unknown]
  - Pyrexia [Unknown]
  - Anuria [Unknown]
  - Vomiting [Unknown]
  - Dehydration [Unknown]
  - Renal impairment [Unknown]
  - Leukocytosis [Unknown]
  - Platelet count decreased [Unknown]
  - Pulmonary oedema [Fatal]
